FAERS Safety Report 10425728 (Version 1)
Quarter: 2014Q3

REPORT INFORMATION
  Report Type: Report from Study
  Country: US (occurrence: US)
  Receive Date: 20140903
  Receipt Date: 20140903
  Transmission Date: 20150326
  Serious: No
  Sender: FDA-Public Use
  Company Number: US-ASTRAZENECA-2014SE63491

PATIENT
  Age: 19888 Day
  Sex: Female
  Weight: 61.2 kg

DRUGS (5)
  1. DIOVAN [Concomitant]
     Active Substance: VALSARTAN
     Indication: BLOOD PRESSURE ABNORMAL
     Dates: start: 201405
  2. ATACAND [Suspect]
     Active Substance: CANDESARTAN CILEXETIL
     Indication: HYPERTENSION
     Route: 048
     Dates: start: 2004, end: 201405
  3. CALCIUM [Concomitant]
     Active Substance: CALCIUM
     Indication: BONE DISORDER
     Route: 048
     Dates: start: 2004
  4. VITAMIN D3 [Concomitant]
     Active Substance: CHOLECALCIFEROL
     Indication: BLOOD CALCIUM ABNORMAL
     Route: 048
     Dates: start: 2004
  5. LOSARTAN [Concomitant]
     Active Substance: LOSARTAN
     Indication: BLOOD PRESSURE ABNORMAL
     Dates: start: 20140415

REACTIONS (7)
  - Fatigue [Unknown]
  - Neck pain [Unknown]
  - Stress [Unknown]
  - Depression [Unknown]
  - Hypertension [Unknown]
  - Drug dose omission [Unknown]
  - Depressed mood [Unknown]

NARRATIVE: CASE EVENT DATE: 20140415
